FAERS Safety Report 5583284-6 (Version None)
Quarter: 2008Q1

REPORT INFORMATION
  Report Type: 
  Country: None (occurrence: None)
  Receive Date: 20080107
  Receipt Date: 20071226
  Transmission Date: 20080703
  Serious: Yes (Other)
  Sender: FDA-Public Use
  Company Number: JP-PFIZER INC-2007108677

PATIENT
  Age: 72 Year
  Sex: Female

DRUGS (3)
  1. EPIRUBICIN HYDROCHLORIDE [Suspect]
     Indication: MALIGNANT FIBROUS HISTIOCYTOMA
     Dosage: DAILY DOSE:40MG-FREQ:ON DAYS 2 AND 4
     Route: 042
  2. IFOSFAMIDE [Concomitant]
     Dosage: DAILY DOSE:200MG-FREQ:ON DAYS 1, 2 AND 4 TO 6
     Route: 042
  3. LENOGRASTIM [Concomitant]
     Dosage: DAILY DOSE:100MCG-FREQ:ON DAYS 7 TO 13
     Route: 042

REACTIONS (6)
  - ALTERED STATE OF CONSCIOUSNESS [None]
  - CARDIAC FAILURE [None]
  - FEBRILE NEUTROPENIA [None]
  - HYPONATRAEMIA [None]
  - RESPIRATORY FAILURE [None]
  - SEPSIS [None]
